FAERS Safety Report 8560138-4 (Version None)
Quarter: 2012Q3

REPORT INFORMATION
  Report Type: 
  Country: None (occurrence: None)
  Receive Date: 20120802
  Receipt Date: 20120720
  Transmission Date: 20120928
  Serious: Yes (Hospitalization, Disabling, Other)
  Sender: FDA-Public Use
  Company Number: US-MERCK-1103USA00910

PATIENT

DRUGS (15)
  1. ALBUTEROL [Concomitant]
     Indication: CHRONIC OBSTRUCTIVE PULMONARY DISEASE
     Route: 055
  2. ALENDRONATE SODIUM [Suspect]
     Dosage: 70 MG, QW
     Route: 048
     Dates: start: 20090129, end: 20100718
  3. ZOCOR [Concomitant]
     Indication: HYPERLIPIDAEMIA
     Dosage: 40 MG, QD
     Route: 048
  4. NICODERM [Concomitant]
     Indication: EX-TOBACCO USER
  5. CHANTIX [Concomitant]
     Indication: EX-TOBACCO USER
     Dosage: 1 MG, BID
  6. FOSAMAX [Suspect]
     Indication: OSTEOPOROSIS
     Dosage: 70 MG, QW
     Route: 048
     Dates: start: 20060823, end: 20080201
  7. VITAMIN D (UNSPECIFIED) [Concomitant]
     Indication: OSTEOPOROSIS
     Dosage: 300-1500
  8. CALCIUM (UNSPECIFIED) [Concomitant]
     Indication: OSTEOPOROSIS
     Dosage: 2000 MG, QD
     Route: 048
  9. WELLBUTRIN [Concomitant]
     Indication: DEPRESSION
     Dosage: 75 MG, BID
  10. LEVOTIROXINA S.O [Concomitant]
     Indication: HYPOTHYROIDISM
     Dosage: TO PRESENT
     Dates: start: 19970101
  11. DILANTIN [Concomitant]
     Indication: CONVULSION
     Dosage: 200 MG, HS
  12. DUONEB [Concomitant]
     Indication: CHRONIC OBSTRUCTIVE PULMONARY DISEASE
     Dosage: UNK UNK, BID
  13. FOSAMAX [Suspect]
     Dosage: 70 MG, QW
     Route: 048
     Dates: start: 20100815, end: 20101128
  14. SYNTHROID [Concomitant]
     Indication: HYPOTHYROIDISM
     Dosage: 50-175
     Route: 048
  15. ALENDRONATE SODIUM [Suspect]
     Indication: OSTEOPOROSIS
     Dosage: UNK
     Route: 048
     Dates: start: 20080303, end: 20090105

REACTIONS (21)
  - OSTEOPOROSIS [None]
  - STRESS FRACTURE [None]
  - POST PROCEDURAL HAEMORRHAGE [None]
  - LOBAR PNEUMONIA [None]
  - LOW TURNOVER OSTEOPATHY [None]
  - HYPERTENSION [None]
  - DYSPNOEA [None]
  - FIBROADENOMA OF BREAST [None]
  - FRACTURE [None]
  - CHRONIC OBSTRUCTIVE PULMONARY DISEASE [None]
  - IRRITABLE BOWEL SYNDROME [None]
  - CHEST PAIN [None]
  - VITAMIN D DEFICIENCY [None]
  - FEMUR FRACTURE [None]
  - LEUKOCYTOSIS [None]
  - ATELECTASIS [None]
  - BACK PAIN [None]
  - BREAST CYST [None]
  - CATARACT [None]
  - BRONCHITIS [None]
  - DRUG INEFFECTIVE [None]
